FAERS Safety Report 15250346 (Version 2)
Quarter: 2018Q3

REPORT INFORMATION
  Report Type: Spontaneous
  Country: TZ (occurrence: TZ)
  Receive Date: 20180807
  Receipt Date: 20180814
  Transmission Date: 20181010
  Serious: Yes (Other)
  Sender: FDA-Public Use
  Company Number: TZ-PFIZER INC-2018309539

PATIENT
  Age: 42 Year
  Sex: Female

DRUGS (8)
  1. FLUCONAZOLE. [Suspect]
     Active Substance: FLUCONAZOLE
     Indication: MENINGITIS CRYPTOCOCCAL
     Dosage: 800 MG, UNK (CONSOLIDATION DOSE FOR 8 WEEKS)
     Route: 048
     Dates: start: 2017
  2. AMPICILLIN [Concomitant]
     Active Substance: AMPICILLIN
     Indication: MENINGITIS BACTERIAL
     Dosage: 2 G, 4X/DAY (2 G I.V. 6 HOURLY)
     Route: 042
     Dates: start: 2017
  3. CEFTRIAXONE. [Concomitant]
     Active Substance: CEFTRIAXONE
     Indication: MENINGITIS BACTERIAL
     Dosage: 2 G, 2X/DAY (2 G I.V. 12 HOURLY)
     Route: 042
     Dates: start: 2017
  4. CEFTRIAXONE. [Concomitant]
     Active Substance: CEFTRIAXONE
     Indication: EVIDENCE BASED TREATMENT
  5. FLUCONAZOLE. [Suspect]
     Active Substance: FLUCONAZOLE
     Indication: MENINGITIS CRYPTOCOCCAL
     Dosage: 1.2 G, UNK (INDUCTION)
     Route: 042
     Dates: start: 2017
  6. AMPICILLIN [Concomitant]
     Active Substance: AMPICILLIN
     Indication: EVIDENCE BASED TREATMENT
  7. FLUCONAZOLE. [Suspect]
     Active Substance: FLUCONAZOLE
     Dosage: 400 MG, (MAINTENANCE DOSE FOR ONE YEAR)
     Route: 048
     Dates: start: 2017
  8. LOSARTAN AND HYDROCHLOROTHIAZIDE [Concomitant]
     Active Substance: HYDROCHLOROTHIAZIDE\LOSARTAN POTASSIUM
     Indication: HYPERTENSION
     Dosage: 62.5 MG, DAILY
     Dates: start: 2017

REACTIONS (3)
  - Disease progression [Unknown]
  - Seizure [Unknown]
  - Blindness [Unknown]

NARRATIVE: CASE EVENT DATE: 2017
